FAERS Safety Report 6529691-6 (Version None)
Quarter: 2010Q1

REPORT INFORMATION
  Report Type: 
  Country: None (occurrence: None)
  Receive Date: 20100107
  Receipt Date: 20100104
  Transmission Date: 20100710
  Serious: Yes (Other)
  Sender: FDA-Public Use
  Company Number: CN-ROCHE-677348

PATIENT

DRUGS (4)
  1. BEVACIZUMAB [Suspect]
     Dosage: FORM: INFUSION
     Route: 042
  2. IRINOTECAN HCL [Suspect]
     Dosage: FORM: INFUSION
     Route: 042
  3. LEUCOVORIN CALCIUM [Suspect]
     Route: 040
  4. FLUOROURACIL [Suspect]
     Dosage: FORM: INFUSION (6-8 H)
     Route: 042

REACTIONS (6)
  - DIARRHOEA [None]
  - INTESTINAL OBSTRUCTION [None]
  - LEUKOPENIA [None]
  - MUCOSAL INFLAMMATION [None]
  - NEUTROPENIA [None]
  - THROMBOCYTOPENIA [None]
